FAERS Safety Report 20925053 (Version 2)
Quarter: 2022Q2

REPORT INFORMATION
  Report Type: Spontaneous
  Country: US (occurrence: US)
  Receive Date: 20220607
  Receipt Date: 20220617
  Transmission Date: 20220720
  Serious: Yes (Hospitalization)
  Sender: FDA-Public Use
  Company Number: US-PFIZER INC-202101630080

PATIENT
  Age: 64 Year
  Sex: Female
  Weight: 70.295 kg

DRUGS (2)
  1. IBRANCE [Suspect]
     Active Substance: PALBOCICLIB
     Indication: Breast cancer
     Dosage: 125 MG, 1X/DAY
  2. IBRANCE [Suspect]
     Active Substance: PALBOCICLIB
     Dosage: 50 MG, DAILY

REACTIONS (3)
  - Radiation injury [Recovered/Resolved]
  - Dysphagia [Unknown]
  - Off label use [Unknown]
